FAERS Safety Report 10277377 (Version 2)
Quarter: 2014Q3

REPORT INFORMATION
  Report Type: Spontaneous
  Country: US (occurrence: US)
  Receive Date: 20140703
  Receipt Date: 20140725
  Transmission Date: 20150326
  Serious: Yes (Hospitalization)
  Sender: FDA-Public Use
  Company Number: US-BAUSCH-BL-2014-003050

PATIENT
  Sex: Male

DRUGS (1)
  1. MURO 128 [Suspect]
     Active Substance: SODIUM CHLORIDE
     Indication: CORNEAL EROSION
     Route: 047

REACTIONS (3)
  - Product quality issue [Recovered/Resolved]
  - Eyelid function disorder [Recovered/Resolved]
  - Eye pain [Recovered/Resolved]
